FAERS Safety Report 9693469 (Version 1)
Quarter: 2013Q4

REPORT INFORMATION
  Report Type: Spontaneous
  Country: FR (occurrence: FR)
  Receive Date: 20131118
  Receipt Date: 20131118
  Transmission Date: 20140711
  Serious: Yes (Congenital Anomaly)
  Sender: FDA-Public Use
  Company Number: FR-PFIZER INC-2013324605

PATIENT
  Sex: Male
  Weight: 2.73 kg

DRUGS (1)
  1. EFFEXOR LP [Suspect]
     Indication: NECK PAIN
     Dosage: 75 MG, DAILY
     Route: 064

REACTIONS (9)
  - Maternal exposure during pregnancy [Unknown]
  - Ventricular septal defect [Recovering/Resolving]
  - Hypotonia neonatal [Recovering/Resolving]
  - Neonatal respiratory distress syndrome [Recovered/Resolved]
  - Patent ductus arteriosus [Unknown]
  - Atrial septal defect [Recovering/Resolving]
  - Pulmonary artery stenosis [Unknown]
  - Tricuspid valve incompetence [Unknown]
  - Mitral valve incompetence [Unknown]
